FAERS Safety Report 8989723 (Version 7)
Quarter: 2014Q4

REPORT INFORMATION
  Report Type: Spontaneous
  Country: US (occurrence: US)
  Receive Date: 20121228
  Receipt Date: 20141103
  Transmission Date: 20150529
  Serious: Yes (Hospitalization, Disabling, Other)
  Sender: FDA-Public Use
  Company Number: US-009507513-1203USA03463

PATIENT
  Sex: Female

DRUGS (4)
  1. BONIVA [Suspect]
     Active Substance: IBANDRONATE SODIUM
     Indication: OSTEOPOROSIS
     Dosage: UNK
     Route: 048
     Dates: start: 2007, end: 201203
  2. BONIVA [Suspect]
     Active Substance: IBANDRONATE SODIUM
     Indication: OSTEOPENIA
  3. FOSAMAX [Suspect]
     Active Substance: ALENDRONATE SODIUM
     Dosage: 70 MG, UNK
     Route: 048
     Dates: end: 2007
  4. FOSAMAX [Suspect]
     Active Substance: ALENDRONATE SODIUM
     Indication: OSTEOPENIA
     Dosage: 10 MG, UNK
     Route: 048
     Dates: start: 19991018, end: 20030516

REACTIONS (34)
  - Cardiac valve disease [Unknown]
  - Peptic ulcer [Unknown]
  - Atrial fibrillation [Not Recovered/Not Resolved]
  - Femur fracture [Not Recovered/Not Resolved]
  - Femur fracture [Not Recovered/Not Resolved]
  - Haemorrhage [Unknown]
  - Bundle branch block left [Unknown]
  - Cardiac murmur [Unknown]
  - Irritable bowel syndrome [Unknown]
  - Low turnover osteopathy [Not Recovered/Not Resolved]
  - Chest discomfort [Unknown]
  - Peripheral vascular disorder [Unknown]
  - Hypertension [Unknown]
  - Varicose vein [Unknown]
  - Chronic obstructive pulmonary disease [Not Recovered/Not Resolved]
  - Hypercholesterolaemia [Unknown]
  - Osteoarthritis [Unknown]
  - Rheumatoid arthritis [Unknown]
  - Osteoporosis [Not Recovered/Not Resolved]
  - Intramedullary rod insertion [Unknown]
  - Cerebrovascular accident [Not Recovered/Not Resolved]
  - Intramedullary rod insertion [Not Recovered/Not Resolved]
  - Spider vein [Unknown]
  - Urinary tract infection [Unknown]
  - Heart rate irregular [Not Recovered/Not Resolved]
  - Stress fracture [Not Recovered/Not Resolved]
  - Inflammatory bowel disease [Unknown]
  - Diverticulum [Unknown]
  - Leukocytosis [Unknown]
  - Gallbladder operation [Unknown]
  - Pyrexia [Unknown]
  - Femur fracture [Not Recovered/Not Resolved]
  - Depression [Unknown]
  - Fall [Unknown]

NARRATIVE: CASE EVENT DATE: 2002
